FAERS Safety Report 9022759 (Version 1)
Quarter: 2013Q1

REPORT INFORMATION
  Report Type: Spontaneous
  Country: US (occurrence: US)
  Receive Date: 20130120
  Receipt Date: 20130120
  Transmission Date: 20140127
  Serious: No
  Sender: FDA-Public Use
  Company Number: US-ALLERGAN-1217688US

PATIENT
  Age: 29 None
  Sex: Female

DRUGS (2)
  1. BOTOX? [Suspect]
     Indication: SKIN WRINKLING
     Dosage: 25 UNITS, SINGLE
  2. JUVEDERM [Suspect]
     Indication: PRODUCT USED FOR UNKNOWN INDICATION

REACTIONS (1)
  - Mouth cyst [Unknown]
